FAERS Safety Report 6678218-7 (Version None)
Quarter: 2010Q2

REPORT INFORMATION
  Report Type: 
  Country: None (occurrence: None)
  Receive Date: 20100408
  Receipt Date: 20100408
  Transmission Date: 20101027
  Serious: Yes (Other)
  Sender: FDA-Public Use
  Company Number: None

PATIENT
  Age: 66 Year
  Sex: Male
  Weight: 77.1115 kg

DRUGS (1)
  1. ULORIC [Suspect]
     Indication: GOUT
     Dosage: ONE DAILY PO
     Route: 048
     Dates: start: 20100219, end: 20100220

REACTIONS (4)
  - BLOOD PRESSURE INCREASED [None]
  - INFLUENZA LIKE ILLNESS [None]
  - MUSCLE SPASMS [None]
  - NAUSEA [None]
